FAERS Safety Report 8108068-6 (Version None)
Quarter: 2011Q4

REPORT INFORMATION
  Report Type: 
  Country: None (occurrence: None)
  Receive Date: 20111227
  Receipt Date: 20110929
  Transmission Date: 20120403
  Serious: Yes (Other)
  Sender: FDA-Public Use
  Company Number: PHEH2011US05855

PATIENT
  Age: 44 Year
  Sex: Female
  Weight: 100.2 kg

DRUGS (9)
  1. PROVIGIL [Concomitant]
  2. ANTIFUNGAL DRUGS (ANTIFUNGAL DRUGS) [Concomitant]
  3. ACETAMINOPHEN [Concomitant]
  4. DEXLANSOPRAZOLE (DEXLANSOPRAZOLE) [Concomitant]
  5. EFFEXOR XR [Concomitant]
  6. GILENYA [Suspect]
     Dosage: 0.5 MG, QD, ORAL
     Route: 048
     Dates: start: 20110401
  7. ALLEGRA [Concomitant]
  8. HYDROXYZINE [Concomitant]
  9. STEROIDS NOS [Concomitant]

REACTIONS (20)
  - RASH PAPULAR [None]
  - ORAL PAIN [None]
  - ARTHRITIS [None]
  - ACTIVATED PARTIAL THROMBOPLASTIN TIME PROLONGED [None]
  - OEDEMA PERIPHERAL [None]
  - CELLULITIS [None]
  - PAIN IN EXTREMITY [None]
  - ANXIETY [None]
  - MUSCLE DISORDER [None]
  - PRURITUS [None]
  - LYMPHOCYTE COUNT DECREASED [None]
  - NEUTROPHIL COUNT INCREASED [None]
  - SWOLLEN TONGUE [None]
  - ERYTHEMA [None]
  - EXCORIATION [None]
  - DRUG ERUPTION [None]
  - ECZEMA EYELIDS [None]
  - IMMUNODEFICIENCY [None]
  - BLOOD CREATININE DECREASED [None]
  - BLOOD GLUCOSE INCREASED [None]
